FAERS Safety Report 26196515 (Version 1)
Quarter: 2025Q4

REPORT INFORMATION
  Report Type: Spontaneous
  Country: EU (occurrence: EU)
  Receive Date: 20251224
  Receipt Date: 20251224
  Transmission Date: 20260117
  Serious: Yes (Life-Threatening, Other)
  Sender: DR REDDYS
  Company Number: None

PATIENT
  Age: 55 Year
  Sex: Male
  Weight: 80 kg

DRUGS (17)
  1. CYCLOPHOSPHAMIDE [Suspect]
     Active Substance: CYCLOPHOSPHAMIDE
     Indication: Skin graft
     Dosage: 3900 MG, QD
     Dates: start: 20200625
  2. CYCLOPHOSPHAMIDE [Suspect]
     Active Substance: CYCLOPHOSPHAMIDE
     Dosage: 3900 MG, QD
     Dates: start: 20200626
  3. OCTREOTIDE ACETATE [Suspect]
     Active Substance: OCTREOTIDE ACETATE
     Indication: Diarrhoea
     Dosage: UNK??THERAPY START DATE: 21-JUL-2020
     Route: 065
     Dates: end: 20200803
  4. RUXOLITINIB [Suspect]
     Active Substance: RUXOLITINIB
     Indication: Graft versus host disease
     Dosage: 2 DF, QD (5 MG)??THERAPY START DATE: 15-JUL-2020
     Route: 065
  5. RUXOLITINIB [Suspect]
     Active Substance: RUXOLITINIB
     Dosage: 2 DF, QD (10 MG)
     Route: 065
     Dates: start: 20200718
  6. RUXOLITINIB [Suspect]
     Active Substance: RUXOLITINIB
     Dosage: 2 DF, QD (15 MG)
     Route: 065
     Dates: start: 20200728
  7. CYCLOSPORINE [Suspect]
     Active Substance: CYCLOSPORINE
     Indication: Skin graft
     Dosage: 200 MG, QD
     Dates: start: 20200627, end: 20200827
  8. CYCLOSPORINE [Suspect]
     Active Substance: CYCLOSPORINE
     Dosage: 160 MG, QD
     Dates: start: 20200818, end: 20210331
  9. CYCLOSPORINE [Suspect]
     Active Substance: CYCLOSPORINE
     Dosage: 160 MG, QD
     Dates: start: 20210331
  10. MYCOPHENOLATE MOFETIL [Suspect]
     Active Substance: MYCOPHENOLATE MOFETIL
     Indication: Skin graft
     Dosage: 2000 MG, QD
     Dates: start: 20200627, end: 20200806
  11. MYCOPHENOLATE MOFETIL [Suspect]
     Active Substance: MYCOPHENOLATE MOFETIL
     Dosage: 2000 MG, QD
     Dates: start: 20200806
  12. FILGRASTIM [Concomitant]
     Active Substance: FILGRASTIM
     Indication: Neutropenia
     Dosage: UNK
     Route: 065
     Dates: start: 20200721
  13. FILGRASTIM [Concomitant]
     Active Substance: FILGRASTIM
     Indication: Toxicity to various agents
  14. FLUDARABINE [Concomitant]
     Active Substance: FLUDARABINE PHOSPHATE
     Indication: Skin graft
     Dosage: 56.7 MG, QD
     Dates: start: 20200618
  15. FLUDARABINE [Concomitant]
     Active Substance: FLUDARABINE PHOSPHATE
     Dosage: 56.7 MG, QD
     Dates: start: 20200620
  16. CEFEPIME [Concomitant]
     Active Substance: CEFEPIME HYDROCHLORIDE
     Indication: Bone marrow failure
     Dosage: UNK
     Route: 065
     Dates: start: 20200821
  17. LINEZOLID [Concomitant]
     Active Substance: LINEZOLID
     Indication: Bone marrow failure
     Dosage: UNK
     Route: 065
     Dates: start: 20200827

REACTIONS (5)
  - Human herpesvirus 6 infection reactivation [Recovered/Resolved]
  - Pancytopenia [Unknown]
  - Hypogammaglobulinaemia [Unknown]
  - Graft versus host disease [Unknown]
  - Off label use [Unknown]

NARRATIVE: CASE EVENT DATE: 20200713
